FAERS Safety Report 21824718 (Version 2)
Quarter: 2024Q1

REPORT INFORMATION
  Report Type: Spontaneous
  Country: US (occurrence: US)
  Receive Date: 20230105
  Receipt Date: 20240112
  Transmission Date: 20240410
  Serious: Yes (Death)
  Sender: FDA-Public Use
  Company Number: US-002147023-NVSC2023US002298

PATIENT
  Age: 90 Year
  Sex: Male

DRUGS (1)
  1. PLUVICTO [Suspect]
     Active Substance: LUTETIUM LU-177 VIPIVOTIDE TETRAXETAN
     Indication: Product used for unknown indication
     Dosage: UNK (RECEIVED 05 DOSES)
     Route: 042
     Dates: start: 20220628, end: 20221213

REACTIONS (1)
  - Death [Fatal]

NARRATIVE: CASE EVENT DATE: 20221226
